FAERS Safety Report 8384469-6 (Version None)
Quarter: 2012Q2

REPORT INFORMATION
  Report Type: 
  Country: None (occurrence: None)
  Receive Date: 20120524
  Receipt Date: 20120522
  Transmission Date: 20120825
  Serious: Yes (Other)
  Sender: FDA-Public Use
  Company Number: AT-GLAXOSMITHKLINE-B0803542A

PATIENT
  Age: 76 Year
  Sex: Female
  Weight: 85 kg

DRUGS (1)
  1. ZOFRAN [Suspect]
     Indication: PROPHYLAXIS OF NAUSEA AND VOMITING
     Dosage: 4MG UNKNOWN
     Route: 048
     Dates: start: 20120428, end: 20120429

REACTIONS (2)
  - NAUSEA [None]
  - BLOOD PRESSURE SYSTOLIC DECREASED [None]
